FAERS Safety Report 5141660-X (Version None)
Quarter: 2006Q4

REPORT INFORMATION
  Report Type: 
  Country: None (occurrence: None)
  Receive Date: 20061026
  Receipt Date: 20061017
  Transmission Date: 20070319
  Serious: Yes (Hospitalization)
  Sender: FDA-Public Use
  Company Number: TPA2006A01841

PATIENT
  Sex: 0

DRUGS (1)
  1. ROZEREM [Suspect]
     Indication: SLEEP DISORDER
     Dosage: PER ORAL
     Route: 048

REACTIONS (1)
  - THERAPY NON-RESPONDER [None]
